FAERS Safety Report 9679242 (Version 1)
Quarter: 2013Q4

REPORT INFORMATION
  Report Type: Report from Study
  Country: US (occurrence: US)
  Receive Date: 20131109
  Receipt Date: 20131109
  Transmission Date: 20140711
  Serious: Yes (Other)
  Sender: FDA-Public Use
  Company Number: US-ROCHE-1296812

PATIENT
  Sex: Female

DRUGS (14)
  1. AVASTIN [Suspect]
     Indication: BRAIN NEOPLASM MALIGNANT
     Dosage: AS DIRECTED
     Route: 042
  2. LANTUS SOLOSTAR [Concomitant]
     Dosage: 26 UNITS AS DIRECTED
     Route: 058
  3. PROMETHAZINE HCL [Concomitant]
     Indication: NAUSEA
     Dosage: TAKE 1 PO Q4H
     Route: 048
  4. KLOR-CON M20 [Concomitant]
     Dosage: TAKE 1 PO DAILY
     Route: 048
  5. SYNTHROID [Concomitant]
     Dosage: 150MCG TABLET, TAKE 1 PO DAILY
     Route: 048
  6. VITAMIN B6 [Concomitant]
     Dosage: TAKE 1 PO DAILY
     Route: 048
  7. ASPIRIN [Concomitant]
     Dosage: TAKE 1 PO DAILY
     Route: 048
  8. KEPPRA [Concomitant]
     Dosage: TAKE 2 PO BID
     Route: 048
  9. CALCIUM CARBONATE [Concomitant]
     Dosage: TAKE 2 PO BID
     Route: 048
  10. VITAMIN C [Concomitant]
     Dosage: TAKE 1 PO DAILY
     Route: 048
  11. ALLEGRA [Concomitant]
     Dosage: TAKE 1 PO AS DIRECTED
     Route: 048
  12. FLONASE [Concomitant]
     Dosage: 50MCG SPRAY SUSPENSION TAKE 1 INHALATION ROUTE PRN
     Route: 065
  13. VIMPAT [Concomitant]
     Dosage: TAKE 1 PO BID
     Route: 048
  14. DEXAMETHASONE [Concomitant]
     Dosage: TAKE 1 TABLET BY MOUTH EVERY DAY AS DIRECTED, THEN 1 TABLET EVERY OTHER DAY AS DIRECTED
     Route: 048

REACTIONS (2)
  - Convulsion [Unknown]
  - Blood pressure increased [Unknown]
